FAERS Safety Report 20381312 (Version 2)
Quarter: 2022Q1

REPORT INFORMATION
  Report Type: Report from Study
  Country: BR (occurrence: BR)
  Receive Date: 20220127
  Receipt Date: 20220314
  Transmission Date: 20220423
  Serious: Yes (Other)
  Sender: FDA-Public Use
  Company Number: BR-ABBOTT-2022A-1345106

PATIENT
  Age: 22 Year
  Sex: Male
  Weight: 79 kg

DRUGS (4)
  1. SYNTHROID [Suspect]
     Active Substance: LEVOTHYROXINE SODIUM
     Indication: Hypothyroidism
     Dosage: IN FASTING, USES THE SYNTHROID 200MCG DRUG; 1 TABLET DAILY
     Route: 048
  2. SYNTHROID [Suspect]
     Active Substance: LEVOTHYROXINE SODIUM
     Indication: Thyroid hormone replacement therapy
     Dosage: BEFORE THE SURGERY, HE ALREADY HAD HYPOTHYROIDISM, TOOK 50MCG ONCE A DAY ON EMPTY STOMACH
     Route: 048
  3. SYNTHROID [Suspect]
     Active Substance: LEVOTHYROXINE SODIUM
     Dosage: IN FASTING, USES THE SYNTHROID 100 MCG DRUG; 1 TABLET DAILY
     Route: 048
  4. SYNTHROID [Suspect]
     Active Substance: LEVOTHYROXINE SODIUM
     Dosage: IN FASTING, USES THE SYNTHROID 88 MCG DRUG; 1 TABLET DAILY
     Route: 048

REACTIONS (1)
  - Thyroidectomy [Unknown]
